FAERS Safety Report 5011729-9 (Version None)
Quarter: 2006Q2

REPORT INFORMATION
  Report Type: 
  Country: None (occurrence: None)
  Receive Date: 20060523
  Receipt Date: 20060523
  Transmission Date: 20061013
  Serious: No
  Sender: FDA-Public Use
  Company Number: None

PATIENT
  Sex: Male
  Weight: 67.1324 kg

DRUGS (4)
  1. OMEPRAZOLE [Suspect]
     Indication: OESOPHAGEAL ACHALASIA
     Dosage: 20MG Q DAY PO
     Route: 048
     Dates: start: 20050526, end: 20051222
  2. CYCLOBENZAPRINE HCL [Concomitant]
  3. METHADONE [Concomitant]
  4. PIROXICAM [Concomitant]

REACTIONS (1)
  - MYALGIA [None]
